FAERS Safety Report 15439419 (Version 1)
Quarter: 2018Q3

REPORT INFORMATION
  Report Type: Spontaneous
  Country: ES (occurrence: ES)
  Receive Date: 20180928
  Receipt Date: 20180928
  Transmission Date: 20181010
  Serious: Yes (Other)
  Sender: FDA-Public Use
  Company Number: ES-GILEAD-2018-0365312

PATIENT
  Age: 52 Year
  Sex: Male

DRUGS (8)
  1. ZYDELIG [Suspect]
     Active Substance: IDELALISIB
     Indication: PRODUCT USED FOR UNKNOWN INDICATION
     Dosage: UNK UNK, UNKNOWN FREQ.
     Route: 065
  2. RITUXIMAB. [Suspect]
     Active Substance: RITUXIMAB
     Indication: PRODUCT USED FOR UNKNOWN INDICATION
     Dosage: UNK UNK, CYCLIC (SIX CYCLES)
     Route: 065
  3. RITUXIMAB. [Suspect]
     Active Substance: RITUXIMAB
     Dosage: UNK UNK, CYCLIC
     Route: 065
  4. BENDAMUSTINE HYDROCHLORIDE. [Suspect]
     Active Substance: BENDAMUSTINE HYDROCHLORIDE
     Indication: PRODUCT USED FOR UNKNOWN INDICATION
     Dosage: UNK UNK, CYCLIC (SIX CYCLES)
     Route: 042
  5. IBRUTINIB [Suspect]
     Active Substance: IBRUTINIB
     Indication: PRODUCT USED FOR UNKNOWN INDICATION
     Dosage: 420 MG, UNK
     Route: 065
     Dates: start: 201502
  6. R CHOP [Suspect]
     Active Substance: CYCLOPHOSPHAMIDE\DOXORUBICIN\PREDNISONE\RITUXIMAB\VINCRISTINE
     Indication: PRODUCT USED FOR UNKNOWN INDICATION
     Dosage: UNK, CYCLIC (SIX CYCLES)
     Route: 065
  7. ZYDELIG [Suspect]
     Active Substance: IDELALISIB
     Dosage: UNK UNK, UNKNOWN FREQ.
     Route: 065
  8. IBRUTINIB [Suspect]
     Active Substance: IBRUTINIB
     Dosage: 420 MG, UNK
     Route: 065

REACTIONS (2)
  - Chronic lymphocytic leukaemia [Unknown]
  - Therapy partial responder [Unknown]

NARRATIVE: CASE EVENT DATE: 201311
